FAERS Safety Report 6163551-8 (Version None)
Quarter: 2009Q2

REPORT INFORMATION
  Report Type: 
  Country: None (occurrence: None)
  Receive Date: 20090420
  Receipt Date: 20090420
  Transmission Date: 20091009
  Serious: Yes (Hospitalization)
  Sender: FDA-Public Use
  Company Number: None

PATIENT
  Age: 78 Year
  Sex: Female
  Weight: 90.7194 kg

DRUGS (2)
  1. DIGOXIN [Suspect]
     Indication: ATRIAL FIBRILLATION
     Dosage: 0.25 MG DAILY PO
     Route: 048
     Dates: start: 20080830, end: 20080927
  2. DIGOXIN [Suspect]
     Indication: BLOOD PRESSURE DECREASED
     Dosage: 0.25 MG DAILY PO
     Route: 048
     Dates: start: 20080830, end: 20080927

REACTIONS (3)
  - DIARRHOEA [None]
  - MALAISE [None]
  - NAUSEA [None]
